FAERS Safety Report 13066739 (Version 1)
Quarter: 2016Q4

REPORT INFORMATION
  Report Type: Spontaneous
  Country: US (occurrence: US)
  Receive Date: 20161227
  Receipt Date: 20161227
  Transmission Date: 20170207
  Serious: Yes (Hospitalization)
  Sender: FDA-Public Use
  Company Number: US-ELI_LILLY_AND_COMPANY-US201612008202

PATIENT
  Age: 60 Year
  Sex: Female

DRUGS (5)
  1. HUMULIN 70/30 [Suspect]
     Active Substance: INSULIN HUMAN
     Dosage: 35 U, BID
     Route: 065
  2. HUMULIN 70/30 [Suspect]
     Active Substance: INSULIN HUMAN
     Dosage: 40 U, BID
     Route: 065
  3. HUMULIN 70/30 [Suspect]
     Active Substance: INSULIN HUMAN
     Indication: TYPE 2 DIABETES MELLITUS
     Dosage: 90 U, UNKNOWN
     Route: 065
     Dates: start: 1996
  4. HUMULIN 70/30 [Suspect]
     Active Substance: INSULIN HUMAN
     Dosage: 100 U, UNKNOWN
     Route: 065
     Dates: start: 20161129
  5. HUMULIN 70/30 [Suspect]
     Active Substance: INSULIN HUMAN
     Dosage: 10 U, UNKNOWN
     Route: 065

REACTIONS (15)
  - Head injury [Recovering/Resolving]
  - Tremor [Not Recovered/Not Resolved]
  - Cerebrovascular accident [Unknown]
  - Urinary tract infection [Unknown]
  - Wrong patient received medication [Unknown]
  - Loss of consciousness [Unknown]
  - Mobility decreased [Unknown]
  - Fall [Unknown]
  - Overweight [Unknown]
  - Fall [Unknown]
  - Blood glucose increased [Unknown]
  - Mental disorder [Unknown]
  - Blood glucose decreased [Unknown]
  - Skull fracture [Unknown]
  - Concussion [Recovering/Resolving]

NARRATIVE: CASE EVENT DATE: 201406
